FAERS Safety Report 24468528 (Version 2)
Quarter: 2024Q4

REPORT INFORMATION
  Report Type: Spontaneous
  Country: US (occurrence: US)
  Receive Date: 20241018
  Receipt Date: 20241029
  Transmission Date: 20250115
  Serious: Yes (Other)
  Sender: SANOFI AVENTIS
  Company Number: US-SA-2024SA300544

PATIENT
  Age: 83 Year
  Sex: Female
  Weight: 58.97 kg

DRUGS (2)
  1. DUPIXENT [Suspect]
     Active Substance: DUPILUMAB
     Indication: Dermatitis atopic
     Dosage: 300 MG, BIM
     Route: 058
     Dates: start: 20240110, end: 20241016
  2. DUPIXENT [Suspect]
     Active Substance: DUPILUMAB
     Indication: Eczema

REACTIONS (2)
  - T-cell lymphoma [Not Recovered/Not Resolved]
  - Lymphocytic infiltration [Unknown]

NARRATIVE: CASE EVENT DATE: 20240101
